FAERS Safety Report 6973877-3 (Version None)
Quarter: 2010Q3

REPORT INFORMATION
  Report Type: 
  Country: None (occurrence: None)
  Receive Date: 20100909
  Receipt Date: 20100830
  Transmission Date: 20110219
  Serious: Yes (Other)
  Sender: FDA-Public Use
  Company Number: B0673635A

PATIENT
  Age: 76 Year
  Sex: Male

DRUGS (3)
  1. ZOFRAN [Suspect]
     Indication: LARYNGEAL OPERATION
     Dosage: 4MG THREE TIMES PER DAY
     Dates: start: 20100802, end: 20100803
  2. AMOXICILLIN AND CLAVULANATE POTASSIUM [Suspect]
     Indication: ANTIBIOTIC PROPHYLAXIS
     Dosage: 1G THREE TIMES PER DAY
     Route: 042
     Dates: start: 20100730, end: 20100803
  3. ENANTYUM [Suspect]
     Indication: PAIN
     Dosage: 5MG THREE TIMES PER DAY
     Dates: start: 20100730, end: 20100803

REACTIONS (1)
  - HEPATOTOXICITY [None]
